FAERS Safety Report 6648605-1 (Version None)
Quarter: 2010Q1

REPORT INFORMATION
  Report Type: 
  Country: None (occurrence: None)
  Receive Date: 20100324
  Receipt Date: 20100316
  Transmission Date: 20100710
  Serious: Yes (Hospitalization)
  Sender: FDA-Public Use
  Company Number: JP-ELI_LILLY_AND_COMPANY-JP201003005057

PATIENT
  Sex: Male

DRUGS (1)
  1. GEMZAR [Suspect]
     Route: 042

REACTIONS (1)
  - LUNG DISORDER [None]
